FAERS Safety Report 4736478-3 (Version None)
Quarter: 2005Q3

REPORT INFORMATION
  Report Type: 
  Country: None (occurrence: None)
  Receive Date: 20050804
  Receipt Date: 20050804
  Transmission Date: 20060218
  Serious: Yes (Hospitalization, Other)
  Sender: FDA-Public Use
  Company Number: None

PATIENT
  Age: 42 Year
  Sex: Female
  Weight: 78.0187 kg

DRUGS (5)
  1. LAMICTAL [Suspect]
     Indication: BIPOLAR DISORDER
     Dosage: 25 MG QD
     Dates: start: 20050526, end: 20050608
  2. PAXIL [Concomitant]
  3. KETEK [Concomitant]
  4. ZANTAC [Concomitant]
  5. MEDROL [Concomitant]

REACTIONS (1)
  - STEVENS-JOHNSON SYNDROME [None]
